FAERS Safety Report 22161318 (Version 1)
Quarter: 2023Q1

REPORT INFORMATION
  Report Type: Spontaneous
  Country: US (occurrence: US)
  Receive Date: 20230331
  Receipt Date: 20230331
  Transmission Date: 20230418
  Serious: No
  Sender: FDA-Public Use
  Company Number: US-MYLANLABS-2023M1031183

PATIENT
  Sex: Male

DRUGS (3)
  1. SEMGLEE (INSULIN GLARGINE-YFGN) [Suspect]
     Active Substance: INSULIN GLARGINE-YFGN
     Indication: Type 2 diabetes mellitus
     Dosage: 50 INTERNATIONAL UNIT, QD NIGHT
     Route: 058
     Dates: start: 20230308
  2. SEMGLEE (INSULIN GLARGINE-YFGN) [Suspect]
     Active Substance: INSULIN GLARGINE-YFGN
     Dosage: 50 INTERNATIONAL UNIT, QD
     Route: 058
     Dates: start: 20230313
  3. NOVOLOG [Concomitant]
     Active Substance: INSULIN ASPART
     Dosage: 8 INTERNATIONAL UNIT, TID
     Route: 065

REACTIONS (3)
  - Product storage error [Unknown]
  - Device mechanical issue [Unknown]
  - Device defective [Unknown]
